FAERS Safety Report 6494417-1 (Version None)
Quarter: 2009Q4

REPORT INFORMATION
  Report Type: 
  Country: None (occurrence: None)
  Receive Date: 20091214
  Receipt Date: 20090217
  Transmission Date: 20100525
  Serious: No
  Sender: FDA-Public Use
  Company Number: US-BRISTOL-MYERS SQUIBB COMPANY-14508998

PATIENT
  Age: 44 Year
  Sex: Male
  Weight: 77 kg

DRUGS (3)
  1. ABILIFY [Suspect]
     Indication: DEPRESSION
     Dosage: DURATION: 3 DAYS AGO.
  2. LEXAPRO [Concomitant]
  3. KLONOPIN [Concomitant]

REACTIONS (3)
  - INSOMNIA [None]
  - NASOPHARYNGITIS [None]
  - SOMNOLENCE [None]
